FAERS Safety Report 10292666 (Version 2)
Quarter: 2014Q3

REPORT INFORMATION
  Report Type: Spontaneous
  Country: US (occurrence: US)
  Receive Date: 20140710
  Receipt Date: 20140710
  Transmission Date: 20150326
  Serious: No
  Sender: FDA-Public Use
  Company Number: US-PURDUE-USA-2013-0108782

PATIENT
  Sex: Female

DRUGS (2)
  1. BUTRANS [Suspect]
     Active Substance: BUPRENORPHINE
     Indication: RHEUMATOID ARTHRITIS
     Dosage: 20 MCG/HR, WEEKLY
     Route: 062
     Dates: start: 2013
  2. BUTRANS [Suspect]
     Active Substance: BUPRENORPHINE
     Indication: SYSTEMIC LUPUS ERYTHEMATOSUS

REACTIONS (6)
  - Wrong technique in drug usage process [Unknown]
  - Product adhesion issue [Unknown]
  - Drug ineffective [Unknown]
  - Hyperhidrosis [Unknown]
  - Product quality issue [Unknown]
  - Inadequate analgesia [Unknown]
